FAERS Safety Report 17916906 (Version 2)
Quarter: 2020Q2

REPORT INFORMATION
  Report Type: Spontaneous
  Country: US (occurrence: US)
  Receive Date: 20200619
  Receipt Date: 20200622
  Transmission Date: 20200714
  Serious: No
  Sender: FDA-Public Use
  Company Number: US-SHIRE-US202020082

PATIENT
  Sex: Female

DRUGS (1)
  1. GATTEX [Suspect]
     Active Substance: TEDUGLUTIDE\WATER
     Indication: PRODUCT USED FOR UNKNOWN INDICATION
     Dosage: 0.0500 UNIT UNKNOWN, 1X/DAY:QD,
     Route: 058
     Dates: start: 20190907, end: 20200617

REACTIONS (2)
  - Drug ineffective [Unknown]
  - Weight gain poor [Unknown]
